FAERS Safety Report 8788526 (Version 1)
Quarter: 2012Q4

REPORT INFORMATION
  Report Type: 
  Country: US (occurrence: US)
  Receive Date: 20120914
  Receipt Date: 20120914
  Transmission Date: 20130627
  Serious: Yes (Hospitalization, Other)
  Sender: FDA-Public Use
  Company Number: US-VERTEX PHARMACEUTICAL INC.-2012-019726

PATIENT
  Sex: Male
  Weight: 79.4 kg

DRUGS (7)
  1. VX-950 [Suspect]
     Indication: HEPATITIS C
     Dosage: 750 mg, tid
     Route: 048
     Dates: start: 20120530
  2. RIBASPHERE [Concomitant]
     Indication: HEPATITIS C
     Dosage: 1200 mg, qd
     Route: 048
     Dates: start: 20120530
  3. PEGASYS [Concomitant]
     Dosage: 180 UNK, UNK
     Route: 058
     Dates: start: 20120530
  4. CENTRUM MULTIVITAMIN [Concomitant]
     Dosage: 1 DF, qd
     Route: 048
     Dates: start: 20120524
  5. MOTRIN [Concomitant]
     Dosage: 800 mg, qd
     Route: 048
     Dates: start: 20120524
  6. DIALYVITE VITAMIN D [Concomitant]
     Dosage: 5000 ut, qd
     Route: 048
     Dates: start: 20120524
  7. ASPIRIN [Concomitant]
     Dosage: 81 mg, qd
     Dates: start: 20120524

REACTIONS (2)
  - Anaemia [Recovered/Resolved]
  - Fatigue [Unknown]
